FAERS Safety Report 21467138 (Version 2)
Quarter: 2022Q4

REPORT INFORMATION
  Report Type: Report from Study
  Country: MX (occurrence: MX)
  Receive Date: 20221017
  Receipt Date: 20221025
  Transmission Date: 20230113
  Serious: Yes (Disabling, Other)
  Sender: FDA-Public Use
  Company Number: MX-BRISTOL-MYERS SQUIBB COMPANY-2022-120202

PATIENT
  Age: 66 Year
  Sex: Male
  Weight: 58 kg

DRUGS (14)
  1. NIVOLUMAB [Suspect]
     Active Substance: NIVOLUMAB
     Indication: Non-small cell lung cancer
     Dosage: DOSE DELAYED
     Route: 042
     Dates: start: 20211210
  2. NIVOLUMAB [Suspect]
     Active Substance: NIVOLUMAB
     Dosage: DOSE DELAYED
     Route: 042
     Dates: start: 20220830
  3. CARBOPLATIN [Suspect]
     Active Substance: CARBOPLATIN
     Indication: Non-small cell lung cancer
     Dosage: DOSE DELAYED
     Route: 065
     Dates: start: 20211210
  4. CARBOPLATIN [Suspect]
     Active Substance: CARBOPLATIN
     Dosage: DOSE DELAYED
     Route: 065
     Dates: start: 20220301
  5. PEMETREXED DISODIUM [Suspect]
     Active Substance: PEMETREXED DISODIUM
     Indication: Non-small cell lung cancer
     Dosage: MOST RECENT DOSE OF PEMETREXED (815 MG) ON 01-MAR-2022?DOSE DELAYED
     Route: 065
     Dates: start: 20211210
  6. PEMETREXED DISODIUM [Suspect]
     Active Substance: PEMETREXED DISODIUM
     Dosage: DOSE DELAYED
     Route: 065
     Dates: start: 20220301
  7. PREDNISONE [Suspect]
     Active Substance: PREDNISONE
     Indication: Glucocorticoid deficiency
     Route: 048
     Dates: start: 20220920
  8. ROSUVASTATIN [Concomitant]
     Active Substance: ROSUVASTATIN
     Indication: Product used for unknown indication
     Route: 048
     Dates: start: 2012
  9. FOLIC ACID [Concomitant]
     Active Substance: FOLIC ACID
     Indication: Product used for unknown indication
     Route: 048
     Dates: start: 20211125
  10. VITAMIN B COMPLEX [Concomitant]
     Active Substance: CYANOCOBALAMIN\DEXPANTHENOL\NIACINAMIDE\PYRIDOXINE HYDROCHLORIDE\RIBOFLAVIN 5^-PHOSPHATE SODIUM\THIA
     Indication: Product used for unknown indication
     Dosage: 1 DOSAGE FORM (UNIT NOT PROVIDED)?EVERY TWO MONTHS
     Route: 030
     Dates: start: 20211216
  11. OMEPRAZOLE [Concomitant]
     Active Substance: OMEPRAZOLE
     Indication: Product used for unknown indication
     Dosage: EVERY 24 HOURS
     Route: 048
     Dates: start: 20211210
  12. METOCLOPRAMIDE [Concomitant]
     Active Substance: METOCLOPRAMIDE
     Indication: Product used for unknown indication
     Dosage: EVERY 8 HOURS
     Route: 048
     Dates: start: 20211210
  13. COVID-19 VACCINE [Concomitant]
     Indication: Prophylaxis
     Route: 030
     Dates: start: 2021
  14. CALCIUM CARBONATE / COLECALCIFEROL [Concomitant]
     Indication: Product used for unknown indication
     Route: 048
     Dates: start: 20211210

REACTIONS (2)
  - Substance-induced psychotic disorder [Recovering/Resolving]
  - Immune-mediated encephalitis [Recovering/Resolving]

NARRATIVE: CASE EVENT DATE: 20221005
